FAERS Safety Report 15793765 (Version 1)
Quarter: 2019Q1

REPORT INFORMATION
  Report Type: Spontaneous
  Country: CA (occurrence: CA)
  Receive Date: 20190107
  Receipt Date: 20190107
  Transmission Date: 20190417
  Serious: Yes (Hospitalization, Other)
  Sender: FDA-Public Use
  Company Number: CA-BAYER-2019-002828

PATIENT
  Sex: Female

DRUGS (47)
  1. DEXPANTHENOL. [Suspect]
     Active Substance: DEXPANTHENOL
  2. CLARITIN [Suspect]
     Active Substance: LORATADINE
     Indication: PRODUCT USED FOR UNKNOWN INDICATION
     Route: 065
  3. APO-ZOPICLONE [Suspect]
     Active Substance: ZOPICLONE
  4. ATIVAN [Suspect]
     Active Substance: LORAZEPAM
  5. DOCOSAHEXAENOIC ACID [Suspect]
     Active Substance: DOCONEXENT
  6. OMEGA-3 MARINE TRIGLYCERIDES [Suspect]
     Active Substance: FISH OIL
  7. SULFAMETHOXAZOLE [Suspect]
     Active Substance: SULFAMETHOXAZOLE
  8. CYANOCOBALAMIN. [Suspect]
     Active Substance: CYANOCOBALAMIN
  9. ERGOCALCIFEROL. [Suspect]
     Active Substance: ERGOCALCIFEROL
  10. MOMETASONE [Suspect]
     Active Substance: MOMETASONE
  11. GUAIFENESIN W/SULFAMETHOXAZOLE/TRIMETHOPRIM [Suspect]
     Active Substance: GUAIFENESIN\SULFAMETHOXAZOLE\TRIMETHOPRIM
  12. ZOPICLONE [Suspect]
     Active Substance: ZOPICLONE
  13. BACLOFEN. [Suspect]
     Active Substance: BACLOFEN
  14. PYRIDOXINE HYDROCHLORIDE. [Suspect]
     Active Substance: PYRIDOXINE HYDROCHLORIDE
  15. SENNOSIDES A+B [Suspect]
     Active Substance: SENNOSIDES A AND B
  16. ALENDRONATE SODIUM. [Suspect]
     Active Substance: ALENDRONATE SODIUM
     Indication: PRODUCT USED FOR UNKNOWN INDICATION
     Route: 065
  17. APO-CAL [Suspect]
     Active Substance: CALCIUM CARBONATE
  18. CALCIUM [Suspect]
     Active Substance: CALCIUM
  19. CALCIUM CARBONATE. [Suspect]
     Active Substance: CALCIUM CARBONATE
  20. DULOXETINE HYDROCHLORIDE. [Suspect]
     Active Substance: DULOXETINE HYDROCHLORIDE
     Dosage: 3.0 MG, QD
     Route: 048
  21. NOVO-HYDRAZIDE [Suspect]
     Active Substance: HYDROCHLOROTHIAZIDE
  22. POTASSIUM CHLORIDE. [Suspect]
     Active Substance: POTASSIUM CHLORIDE
  23. TIZANIDINE HYDROCHLORIDE. [Suspect]
     Active Substance: TIZANIDINE HYDROCHLORIDE
  24. AMINOBENZOIC ACID;CHOLINE;CYANOCOBALAMIN;INOSITOL;NICOTINAMIDE;PANTOTH [Suspect]
     Active Substance: VITAMINS
     Indication: PRODUCT USED FOR UNKNOWN INDICATION
     Route: 065
  25. BIFIDOBACTERIUM ANIMALIS SUBSP. LACTIS [Suspect]
     Active Substance: BIFIDOBACTERIUM ANIMALIS LACTIS
  26. DULOXETINE HYDROCHLORIDE. [Suspect]
     Active Substance: DULOXETINE HYDROCHLORIDE
     Dosage: 1.0 MG, QD
     Route: 048
  27. HYDROMORPHONE HYDROCHLORIDE. [Suspect]
     Active Substance: HYDROMORPHONE HYDROCHLORIDE
  28. VITAMIN B COMPLEX [Suspect]
     Active Substance: CYANOCOBALAMIN\DEXPANTHENOL\NIACINAMIDE\PYRIDOXINE HYDROCHLORIDE\RIBOFLAVIN 5^-PHOSPHATE SODIUM\THIAMINE HYDROCHLORIDE\VITAMIN B COMPLEX
  29. WARFARIN [Suspect]
     Active Substance: WARFARIN
  30. ZANTAC [Suspect]
     Active Substance: RANITIDINE HYDROCHLORIDE
  31. ACIDOPHILUS [Suspect]
     Active Substance: LACTOBACILLUS ACIDOPHILUS
     Indication: PRODUCT USED FOR UNKNOWN INDICATION
     Route: 048
  32. CYANOCOBALAMIN. [Suspect]
     Active Substance: CYANOCOBALAMIN
  33. FUROSEMIDE. [Suspect]
     Active Substance: FUROSEMIDE
  34. HYDROMORPHONE [Suspect]
     Active Substance: HYDROMORPHONE
  35. MYCOPHENOLATE MOFETIL. [Suspect]
     Active Substance: MYCOPHENOLATE MOFETIL
  36. NASONEX [Suspect]
     Active Substance: MOMETASONE FUROATE
  37. NICOTINAMIDE [Suspect]
     Active Substance: NIACINAMIDE
  38. ASCORBIC ACID. [Suspect]
     Active Substance: ASCORBIC ACID
  39. ANTITHYMOCYTE IMMUNOGLOBULIN [Suspect]
     Active Substance: THYMOCYTE IMMUNE GLOBULIN NOS
     Route: 042
  40. APO-BACLOFEN [Suspect]
     Active Substance: BACLOFEN
  41. D-ALPHA TOCOPHEROL [Suspect]
     Active Substance: .ALPHA.-TOCOPHEROL, D-
  42. DOCUSATE SODIUM. [Suspect]
     Active Substance: DOCUSATE SODIUM
  43. IMODIUM [Suspect]
     Active Substance: LOPERAMIDE HYDROCHLORIDE
  44. LYRICA [Suspect]
     Active Substance: PREGABALIN
  45. MELATONIN [Suspect]
     Active Substance: MELATONIN
  46. NORTRIPTYLINE HYDROCHLORIDE. [Suspect]
     Active Substance: NORTRIPTYLINE HYDROCHLORIDE
  47. PREDNISONE. [Suspect]
     Active Substance: PREDNISONE

REACTIONS (4)
  - Pneumonia aspiration [Recovered/Resolved]
  - Somnolence [Recovered/Resolved]
  - Coma [Recovered/Resolved]
  - Gastrooesophageal reflux disease [Recovered/Resolved]
